FAERS Safety Report 10016354 (Version 1)
Quarter: 2014Q1

REPORT INFORMATION
  Report Type: Spontaneous
  Country: GB (occurrence: GB)
  Receive Date: 20140317
  Receipt Date: 20140317
  Transmission Date: 20141002
  Serious: Yes (Other)
  Sender: FDA-Public Use
  Company Number: PHHY2014GB031529

PATIENT
  Age: 57 Year
  Sex: Male

DRUGS (2)
  1. IMATINIB [Suspect]
     Indication: CHRONIC MYELOID LEUKAEMIA
     Dosage: 40 MG, QD
  2. HYDROXYCARBAMIDE [Concomitant]
     Indication: CHRONIC MYELOID LEUKAEMIA

REACTIONS (6)
  - Splenomegaly [Unknown]
  - Blast crisis in myelogenous leukaemia [Unknown]
  - Chronic myeloid leukaemia transformation [Unknown]
  - Lymphadenopathy [Unknown]
  - Lethargy [Unknown]
  - Abdominal pain [Unknown]
